FAERS Safety Report 19263378 (Version 1)
Quarter: 2021Q2

REPORT INFORMATION
  Report Type: Other
  Country: US (occurrence: US)
  Receive Date: 20210517
  Receipt Date: 20210517
  Transmission Date: 20210717
  Serious: Yes (Other)
  Sender: FDA-Public Use
  Company Number: US-ROCHE-2818659

PATIENT
  Sex: Female
  Weight: 72.46 kg

DRUGS (2)
  1. CELLCEPT [Suspect]
     Active Substance: MYCOPHENOLATE MOFETIL\MYCOPHENOLATE MOFETIL HYDROCHLORIDE
     Indication: RENAL TRANSPLANT
     Dosage: 1 CAP(S) BID 90 DAYS
     Route: 048
  2. ASPIRIN. [Concomitant]
     Active Substance: ASPIRIN
     Route: 048

REACTIONS (8)
  - Chronic kidney disease [Unknown]
  - Depressed mood [Unknown]
  - Treatment noncompliance [Unknown]
  - Blood test abnormal [Unknown]
  - Depression [Unknown]
  - Circumstance or information capable of leading to medication error [Unknown]
  - Overweight [Unknown]
  - Grief reaction [Unknown]
